FAERS Safety Report 12450744 (Version 1)
Quarter: 2016Q2

REPORT INFORMATION
  Report Type: Spontaneous
  Country: US (occurrence: US)
  Receive Date: 20160609
  Receipt Date: 20160609
  Transmission Date: 20160815
  Serious: No
  Sender: FDA-Public Use
  Company Number: US-PERRIGO-15US006263

PATIENT
  Age: 62 Year
  Sex: Male
  Weight: 61.22 kg

DRUGS (4)
  1. PERMETHRIN. [Suspect]
     Active Substance: PERMETHRIN
     Dosage: 30 G, SINGLE
     Route: 061
     Dates: start: 20150327, end: 20150327
  2. PERMETHRIN. [Suspect]
     Active Substance: PERMETHRIN
     Dosage: 30 G, SINGLE
     Route: 061
     Dates: start: 20150330, end: 20150330
  3. PERMETHRIN. [Suspect]
     Active Substance: PERMETHRIN
     Dosage: 30 G, SINGLE
     Route: 061
     Dates: start: 201503, end: 201503
  4. PERMETHRIN. [Suspect]
     Active Substance: PERMETHRIN
     Indication: ACARODERMATITIS
     Dosage: 30 G, SINGLE
     Route: 061
     Dates: start: 20150325, end: 20150325

REACTIONS (6)
  - Application site pain [Not Recovered/Not Resolved]
  - Application site dryness [Not Recovered/Not Resolved]
  - Wrong technique in product usage process [Recovered/Resolved]
  - Expired product administered [Recovered/Resolved]
  - Inappropriate schedule of drug administration [Recovered/Resolved]
  - Application site pruritus [Recovered/Resolved]

NARRATIVE: CASE EVENT DATE: 201503
